FAERS Safety Report 7898380-8 (Version None)
Quarter: 2011Q4

REPORT INFORMATION
  Report Type: 
  Country: None (occurrence: None)
  Receive Date: 20111107
  Receipt Date: 20111028
  Transmission Date: 20120403
  Serious: No
  Sender: FDA-Public Use
  Company Number: JP-ASTRAZENECA-2011SE32957

PATIENT
  Age: 87 Year
  Sex: Female

DRUGS (2)
  1. PLAVIX [Concomitant]
     Route: 048
  2. CRESTOR [Suspect]
     Route: 048
     Dates: start: 20110501, end: 20110501

REACTIONS (2)
  - SKIN EXFOLIATION [None]
  - GENERALISED ERYTHEMA [None]
